FAERS Safety Report 20790311 (Version 2)
Quarter: 2022Q4

REPORT INFORMATION
  Report Type: Spontaneous
  Country: US (occurrence: US)
  Receive Date: 20220505
  Receipt Date: 20221103
  Transmission Date: 20230113
  Serious: No
  Sender: FDA-Public Use
  Company Number: US-PFIZER INC-2021345943

PATIENT
  Age: 26 Year
  Sex: Female

DRUGS (4)
  1. XELJANZ XR [Interacting]
     Active Substance: TOFACITINIB CITRATE
     Indication: Colitis ulcerative
     Dosage: 22 MG
     Dates: start: 20201201
  2. XELJANZ XR [Interacting]
     Active Substance: TOFACITINIB CITRATE
     Indication: Rheumatoid arthritis
     Dosage: 22 MG
     Dates: start: 20210630
  3. XELJANZ XR [Interacting]
     Active Substance: TOFACITINIB CITRATE
     Dosage: 22 MG
     Dates: start: 20210913
  4. AZATHIOPRINE [Interacting]
     Active Substance: AZATHIOPRINE
     Dosage: UNK

REACTIONS (5)
  - Product dose omission in error [Unknown]
  - Product dose omission issue [Unknown]
  - Memory impairment [Unknown]
  - Exposure during pregnancy [Unknown]
  - Drug interaction [Unknown]
